FAERS Safety Report 10905688 (Version 1)
Quarter: 2015Q1

REPORT INFORMATION
  Report Type: Spontaneous
  Country: US (occurrence: None)
  Receive Date: 20150309
  Receipt Date: 20150309
  Transmission Date: 20150721
  Serious: Yes (Other)
  Sender: FDA-Public Use
  Company Number: None

PATIENT
  Age: 61 Year
  Sex: Female
  Weight: 70.31 kg

DRUGS (6)
  1. L-GLUTATHIONE [Concomitant]
  2. NORCO [Suspect]
     Active Substance: ACETAMINOPHEN\HYDROCODONE BITARTRATE
     Indication: PAIN
     Dosage: 7.5-325  60 TABS
     Route: 048
     Dates: start: 20150306
  3. NORCO [Concomitant]
     Active Substance: ACETAMINOPHEN\HYDROCODONE BITARTRATE
  4. NORCO [Suspect]
     Active Substance: ACETAMINOPHEN\HYDROCODONE BITARTRATE
     Indication: MULTIPLE INJURIES
     Dosage: 7.5-325  60 TABS
     Route: 048
     Dates: start: 20150306
  5. CARCUMIN [Concomitant]
  6. LADIN [Concomitant]

REACTIONS (3)
  - Joint stiffness [None]
  - Migraine [None]
  - Gait disturbance [None]

NARRATIVE: CASE EVENT DATE: 20150306
